FAERS Safety Report 5080534-X (Version None)
Quarter: 2006Q3

REPORT INFORMATION
  Report Type: 
  Country: None (occurrence: None)
  Receive Date: 20060809
  Receipt Date: 20060724
  Transmission Date: 20061208
  Serious: Yes (Other)
  Sender: FDA-Public Use
  Company Number: 2006AL001952

PATIENT
  Age: 57 Year
  Sex: Female

DRUGS (2)
  1. IBUPROFEN [Suspect]
     Indication: PYREXIA
     Dosage: 10 ML;TID;PO
     Route: 048
     Dates: start: 20060213, end: 20060214
  2. LOPERAMIDE [Concomitant]

REACTIONS (3)
  - ABNORMAL DREAMS [None]
  - DELUSION [None]
  - ILLUSION [None]
